FAERS Safety Report 8321329-0 (Version None)
Quarter: 2012Q2

REPORT INFORMATION
  Report Type: 
  Country: None (occurrence: None)
  Receive Date: 20120430
  Receipt Date: 20120424
  Transmission Date: 20120825
  Serious: Yes (Death, Hospitalization)
  Sender: FDA-Public Use
  Company Number: FR-SANOFI-AVENTIS-2012SA028406

PATIENT
  Age: 79 Year
  Sex: Female

DRUGS (1)
  1. LOVENOX [Suspect]
     Indication: ATRIAL FIBRILLATION
     Route: 058
     Dates: start: 20120221

REACTIONS (3)
  - SHOCK HAEMORRHAGIC [None]
  - INTRA-ABDOMINAL HAEMATOMA [None]
  - BLADDER NECROSIS [None]
